FAERS Safety Report 18713922 (Version 4)
Quarter: 2021Q2

REPORT INFORMATION
  Report Type: Report from Study
  Country: US (occurrence: US)
  Receive Date: 20210107
  Receipt Date: 20210414
  Transmission Date: 20210717
  Serious: Yes (Other)
  Sender: FDA-Public Use
  Company Number: US-TAKEDA-2021TUS000929

PATIENT
  Sex: Female
  Weight: 79 kg

DRUGS (12)
  1. CUVITRU [Suspect]
     Active Substance: HUMAN IMMUNOGLOBULIN G
     Indication: IMMUNODEFICIENCY COMMON VARIABLE
     Dosage: 10 GRAM, 1/WEEK
     Route: 058
     Dates: start: 20201223
  2. B?COMPLEX 2000 [Concomitant]
     Dosage: UNK
     Route: 065
  3. DIGESTIVE ENZYMES [ALPHA?D?GALACTOSIDASE;AMYLASE;BROMELAINS;CELLULASE; [Concomitant]
     Dosage: UNK
     Route: 065
  4. LIDOCAINE. [Concomitant]
     Active Substance: LIDOCAINE
     Dosage: UNK
     Route: 065
  5. B?COMPLEX [AMINOBENZOIC ACID;CALCIUM PANTOTHENATE;CYANOCOBALAMIN;NICOT [Concomitant]
     Dosage: UNK
     Route: 065
  6. DIPHENHYDRAMINE. [Concomitant]
     Active Substance: DIPHENHYDRAMINE
     Route: 065
  7. ACETAMINOPHEN. [Concomitant]
     Active Substance: ACETAMINOPHEN
     Dosage: UNK
     Route: 065
  8. PROBIOTIC [Concomitant]
     Active Substance: PROBIOTICS NOS
     Route: 065
  9. COENZYME Q10 [Concomitant]
     Active Substance: DIETARY SUPPLEMENT\UBIDECARENONE
     Dosage: UNK
     Route: 065
  10. EPINEPHRINE. [Concomitant]
     Active Substance: EPINEPHRINE
     Dosage: UNK
     Route: 065
  11. DIGESTIVE ENZYMES V COMPLEX [Concomitant]
     Dosage: UNK
     Route: 065
  12. MAGNESIUM [Concomitant]
     Active Substance: MAGNESIUM
     Dosage: UNK
     Route: 065

REACTIONS (12)
  - Tinnitus [Unknown]
  - Sinus disorder [Unknown]
  - Feeling abnormal [Unknown]
  - Dental caries [Unknown]
  - Headache [Unknown]
  - Tooth demineralisation [Unknown]
  - Exophthalmos [Unknown]
  - Adverse drug reaction [Unknown]
  - Malaise [Unknown]
  - Arthralgia [Unknown]
  - Overdose [Unknown]
  - Inappropriate schedule of product administration [Unknown]
